FAERS Safety Report 18918392 (Version 1)
Quarter: 2021Q1

REPORT INFORMATION
  Report Type: Spontaneous
  Country: ES (occurrence: ES)
  Receive Date: 20210220
  Receipt Date: 20210220
  Transmission Date: 20210420
  Serious: Yes (Hospitalization, Other)
  Sender: FDA-Public Use
  Company Number: ES-LUPIN PHARMACEUTICALS INC.-2021-02197

PATIENT

DRUGS (6)
  1. METRONIDAZOLE. [Suspect]
     Active Substance: METRONIDAZOLE
     Indication: CERVICITIS GONOCOCCAL
  2. GENTAMICIN. [Suspect]
     Active Substance: GENTAMICIN
     Indication: SYSTEMIC CANDIDA
     Dosage: 240 MILLIGRAM
     Route: 064
  3. CEFTRIAXONE. [Suspect]
     Active Substance: CEFTRIAXONE
     Indication: TRICHOMONIASIS
     Dosage: 250 MILLIGRAM TOTAL
     Route: 064
  4. CEFTRIAXONE. [Suspect]
     Active Substance: CEFTRIAXONE
     Indication: CERVICITIS GONOCOCCAL
  5. AMPICILLIN [Suspect]
     Active Substance: AMPICILLIN
     Indication: SYSTEMIC CANDIDA
     Dosage: 2 GRAM
     Route: 064
  6. METRONIDAZOLE. [Suspect]
     Active Substance: METRONIDAZOLE
     Indication: TRICHOMONIASIS
     Dosage: 500 MILLIGRAM, BID
     Route: 064

REACTIONS (3)
  - Foetal exposure during pregnancy [Unknown]
  - Neonatal candida infection [Recovered/Resolved]
  - Respiratory distress [Recovered/Resolved]
